FAERS Safety Report 7401778-5 (Version None)
Quarter: 2011Q2

REPORT INFORMATION
  Report Type: 
  Country: None (occurrence: None)
  Receive Date: 20110408
  Receipt Date: 20110325
  Transmission Date: 20111010
  Serious: Yes (Hospitalization)
  Sender: FDA-Public Use
  Company Number: JP-BAYER-2011-005656

PATIENT
  Sex: Male
  Weight: 64 kg

DRUGS (41)
  1. SORAFENIB (RAF KINASE INHIBITOR) [Suspect]
     Indication: HEPATIC NEOPLASM MALIGNANT
     Dosage: 400 MG, ONCE
     Route: 048
     Dates: start: 20101216, end: 20110105
  2. GASPORT [Concomitant]
     Dosage: DAILY DOSE 20 MG
     Route: 048
     Dates: start: 20100712
  3. RINDERON-V [Concomitant]
     Indication: PROPHYLAXIS
     Dosage: UNK
     Route: 061
     Dates: start: 20101214
  4. MYSLEE [Concomitant]
     Indication: INSOMNIA
     Dosage: DAILY DOSE 10 MG
     Route: 048
     Dates: start: 20101207
  5. LASIX [Concomitant]
     Indication: OEDEMA
     Dosage: DAILY DOSE 20 MG
     Route: 048
     Dates: start: 20101207
  6. LACTULOSE [Concomitant]
     Indication: DYSCHEZIA
     Dosage: DAILY DOSE 60 ML
     Route: 048
     Dates: start: 20070101
  7. LACTULOSE [Concomitant]
     Dosage: DAILY DOSE 60 ML
     Route: 048
     Dates: start: 20090601, end: 20101218
  8. ASPARA K [Concomitant]
     Indication: HYPOKALAEMIA
     Dosage: DAILY DOSE 300 MG
     Route: 048
     Dates: start: 20070101
  9. ADELAVIN [Concomitant]
     Dosage: DAILY DOSE 0.500 ML
     Route: 042
     Dates: start: 20110114, end: 20110114
  10. PROTEIN SUPPLEMENTS [Concomitant]
     Dosage: DAILY DOSE 400 U
     Dates: start: 20110111, end: 20110111
  11. LACTULOSE [Concomitant]
     Dosage: DAILY DOSE 60 ML
     Route: 048
     Dates: start: 20101221
  12. LOXONIN [Concomitant]
     Indication: HEADACHE
     Dosage: DAILY DOSE 120 MG
     Route: 048
     Dates: start: 20071123
  13. KERATINAMIN [Concomitant]
     Indication: PROPHYLAXIS
     Dosage: UNK
     Route: 061
     Dates: start: 20101209, end: 20110104
  14. NEO-MINOPHAGEN C [Concomitant]
     Dosage: DAILY DOSE 60 ML
     Route: 042
     Dates: start: 20101223, end: 20101223
  15. GASTER [Concomitant]
     Dosage: DAILY DOSE 60 MG
     Route: 042
     Dates: start: 20110112, end: 20110112
  16. GASTER [Concomitant]
     Dosage: DAILY DOSE 20 MG
     Route: 042
     Dates: start: 20110114, end: 20110114
  17. PENTAZOCINE LACTATE [Concomitant]
     Dosage: DAILY DOSE 15 MG
     Route: 042
     Dates: start: 20110111, end: 20110111
  18. PRIMPERAN TAB [Concomitant]
     Dosage: DAILY DOSE 10 MG
     Route: 042
     Dates: start: 20110111, end: 20110111
  19. GLYCERIN [Concomitant]
     Indication: HYPERAMMONAEMIA
     Dosage: DAILY DOSE 120 ML
     Route: 054
     Dates: start: 20110105, end: 20110105
  20. ASPARA K [Concomitant]
     Dosage: DAILY DOSE 900 MG
     Route: 048
     Dates: start: 20100101
  21. GASPORT [Concomitant]
     Indication: PROPHYLAXIS AGAINST GASTROINTESTINAL ULCER
     Dosage: DAILY DOSE 20 MG
     Route: 048
     Dates: start: 20070101
  22. KETOPROFEN [Concomitant]
     Indication: BACK PAIN
     Dosage: UNK
     Route: 062
     Dates: start: 20101206
  23. ADELAVIN [Concomitant]
     Dosage: DAILY DOSE 1 ML
     Route: 042
     Dates: start: 20110111, end: 20110113
  24. TATHION [Concomitant]
     Dosage: DAILY DOSE 100 MG
     Dates: start: 20110114, end: 20110114
  25. GASTER [Concomitant]
     Dosage: DAILY DOSE 40 MG
     Route: 042
     Dates: start: 20110113, end: 20110113
  26. SHAKUYAKUKANZOUTOU [Concomitant]
     Indication: BACK PAIN
     Dosage: DAILY DOSE 3 DF
     Route: 048
  27. TATHION [Concomitant]
     Dosage: DAILY DOSE 200 MG
     Dates: start: 20110111, end: 20110113
  28. ALBUMINAR [Concomitant]
     Dosage: DAILY DOSE 100 ML
     Route: 042
     Dates: start: 20110114, end: 20110116
  29. LASIX [Concomitant]
     Dosage: DAILY DOSE 20 MG
     Route: 042
     Dates: start: 20110114, end: 20110116
  30. URSO 250 [Concomitant]
     Dosage: DAILY DOSE 600 MG
     Route: 048
     Dates: start: 20090707
  31. LOXONIN [Concomitant]
     Dosage: DAILY DOSE 120 MG
     Route: 048
     Dates: start: 20100713
  32. NEO-MINOPHAGEN C [Concomitant]
     Dosage: DAILY DOSE 40 ML
     Route: 042
     Dates: start: 20110105, end: 20110114
  33. GASTER [Concomitant]
     Dosage: DAILY DOSE 20 MG
     Route: 042
     Dates: start: 20110111, end: 20110111
  34. PACETCOOL [Concomitant]
     Dosage: DAILY DOSE 2 G
     Route: 042
     Dates: start: 20110111, end: 20110114
  35. OLDAMIN [Concomitant]
     Dosage: DAILY DOSE 1 G
     Route: 042
     Dates: start: 20110111, end: 20110111
  36. PLATELETS [Concomitant]
     Dosage: DAILY DOSE 10 U
     Route: 042
     Dates: start: 20110111, end: 20110111
  37. LASIX [Concomitant]
     Indication: ASCITES
     Dosage: DAILY DOSE 20 MG
     Route: 048
     Dates: start: 20070101
  38. URSO 250 [Concomitant]
     Indication: BILE OUTPUT ABNORMAL
     Dosage: DAILY DOSE 600 MG
     Route: 048
     Dates: start: 20070101
  39. PURSENNID [Concomitant]
     Indication: CONSTIPATION
     Dosage: DAILY DOSE 24 MG
     Route: 048
     Dates: start: 20101207, end: 20101218
  40. NEO-MINOPHAGEN C [Concomitant]
     Dosage: DAILY DOSE 60 ML
     Route: 042
     Dates: start: 20101221, end: 20101221
  41. ATARAX [Concomitant]
     Dosage: DAILY DOSE 25 MG
     Route: 042
     Dates: start: 20110111, end: 20110111

REACTIONS (2)
  - HYPERAMMONAEMIA [None]
  - HYPERTENSION [None]
